FAERS Safety Report 4490849-1 (Version None)
Quarter: 2004Q4

REPORT INFORMATION
  Report Type: 
  Country: None (occurrence: None)
  Receive Date: 20041027
  Receipt Date: 20041021
  Transmission Date: 20050328
  Serious: Yes (Hospitalization)
  Sender: FDA-Public Use
  Company Number: 2004-10-1167

PATIENT
  Age: 72 Year
  Sex: Female

DRUGS (4)
  1. CLARINEX [Suspect]
     Indication: HYPERSENSITIVITY
     Dosage: 5 MG QD ORAL
     Route: 048
     Dates: start: 20040601
  2. CLARINEX [Suspect]
     Indication: SWELLING FACE
     Dosage: 5 MG QD ORAL
     Route: 048
     Dates: start: 20040601
  3. CORTICOSTEROID NOS [Suspect]
     Indication: HYPERSENSITIVITY
  4. CORTICOSTEROID NOS [Suspect]
     Indication: SWELLING FACE

REACTIONS (4)
  - ANGIONEUROTIC OEDEMA [None]
  - CONDITION AGGRAVATED [None]
  - HYPERSENSITIVITY [None]
  - RESPIRATORY FAILURE [None]
